FAERS Safety Report 10553864 (Version 1)
Quarter: 2014Q4

REPORT INFORMATION
  Report Type: Spontaneous
  Country: US (occurrence: None)
  Receive Date: 20141028
  Receipt Date: 20141028
  Transmission Date: 20150529
  Serious: Yes (Death)
  Sender: FDA-Public Use
  Company Number: US-DEXPHARM-20140694

PATIENT
  Age: 65 Year
  Sex: Male

DRUGS (4)
  1. OMEPRAZOLE. [Suspect]
     Active Substance: OMEPRAZOLE
  2. MELOXICAM. [Suspect]
     Active Substance: MELOXICAM
  3. METHOTREXATE [Suspect]
     Active Substance: METHOTREXATE
  4. FUROSEMIDE. [Suspect]
     Active Substance: FUROSEMIDE

REACTIONS (7)
  - Pancytopenia [None]
  - Toxicity to various agents [None]
  - Drug interaction [None]
  - Blister [None]
  - Metaplasia [None]
  - Skin erosion [None]
  - Renal failure [None]
